FAERS Safety Report 15450162 (Version 1)
Quarter: 2018Q3

REPORT INFORMATION
  Report Type: Spontaneous
  Country: US (occurrence: US)
  Receive Date: 20180927
  Receipt Date: 20180927
  Transmission Date: 20181010
  Serious: Yes (Hospitalization)
  Sender: FDA-Public Use
  Company Number: None

PATIENT
  Sex: Female

DRUGS (4)
  1. IBRANCE [Suspect]
     Active Substance: PALBOCICLIB
     Indication: BREAST CANCER FEMALE
     Route: 048
     Dates: start: 20180328
  2. ANASTROZOLE. [Concomitant]
     Active Substance: ANASTROZOLE
  3. CENTRUM [Concomitant]
     Active Substance: VITAMINS
  4. LUMIGAN [Concomitant]
     Active Substance: BIMATOPROST

REACTIONS (3)
  - Full blood count decreased [None]
  - Drug dose omission [None]
  - Tumour excision [None]
